FAERS Safety Report 22352681 (Version 1)
Quarter: 2023Q2

REPORT INFORMATION
  Report Type: Spontaneous
  Country: US (occurrence: US)
  Receive Date: 20230523
  Receipt Date: 20230523
  Transmission Date: 20230722
  Serious: No
  Sender: FDA-Public Use
  Company Number: US-SA-SAC20230522000152

PATIENT
  Sex: Female

DRUGS (1)
  1. DUPIXENT [Suspect]
     Active Substance: DUPILUMAB
     Dosage: 300MG OTHER
     Route: 058

REACTIONS (5)
  - Alopecia [Unknown]
  - Madarosis [Unknown]
  - Ulcer [Unknown]
  - Skin disorder [Unknown]
  - Rash [Not Recovered/Not Resolved]
